FAERS Safety Report 9897815 (Version 2)
Quarter: 2014Q1

REPORT INFORMATION
  Report Type: Report from Study
  Country: US (occurrence: US)
  Receive Date: 20140214
  Receipt Date: 20140306
  Transmission Date: 20141002
  Serious: Yes (Death, Hospitalization)
  Sender: FDA-Public Use
  Company Number: US-ACTELION-A-US2014-94668

PATIENT
  Age: 58 Year
  Sex: Male

DRUGS (3)
  1. VELETRI [Suspect]
     Indication: PULMONARY ARTERIAL HYPERTENSION
     Dosage: 14 UNK, UNK
     Route: 042
     Dates: start: 20130831
  2. SILDENAFIL [Concomitant]
  3. COUMADIN [Concomitant]

REACTIONS (2)
  - Death [Fatal]
  - Antibiotic therapy [Unknown]
